FAERS Safety Report 21334886 (Version 1)
Quarter: 2022Q3

REPORT INFORMATION
  Report Type: Spontaneous
  Country: US (occurrence: US)
  Receive Date: 20220914
  Receipt Date: 20220914
  Transmission Date: 20221027
  Serious: Yes (Other)
  Sender: FDA-Public Use
  Company Number: US-PHARMACARE-2022-US-021261

PATIENT
  Sex: 0

DRUGS (1)
  1. SAMBUCOL COLD AND FLU NASAL RELIEF [Suspect]
     Active Substance: HOMEOPATHICS
     Indication: Product used for unknown indication
     Route: 048

REACTIONS (6)
  - Urticaria [Unknown]
  - Abdominal pain upper [Unknown]
  - Diarrhoea [Unknown]
  - Vomiting [Unknown]
  - Blood pressure decreased [Unknown]
  - Loss of consciousness [Recovered/Resolved]
